FAERS Safety Report 9184441 (Version 2)
Quarter: 2013Q2

REPORT INFORMATION
  Report Type: Spontaneous
  Country: SE (occurrence: SE)
  Receive Date: 20130322
  Receipt Date: 20130423
  Transmission Date: 20140414
  Serious: Yes (Other)
  Sender: FDA-Public Use
  Company Number: SE-ROCHE-1205011

PATIENT
  Age: 36 Year
  Sex: Female
  Weight: 80 kg

DRUGS (7)
  1. ROACTEMRA [Suspect]
     Indication: PRODUCT USED FOR UNKNOWN INDICATION
     Dosage: DOSE MANINTAINED
     Route: 065
     Dates: start: 20100910
  2. ROACTEMRA [Suspect]
     Dosage: DOSE MAINTAINED
     Route: 065
     Dates: start: 20101018
  3. ROACTEMRA [Suspect]
     Dosage: DOSE MAINTAINED
     Route: 065
     Dates: start: 20101117
  4. ROACTEMRA [Suspect]
     Dosage: DOSE REDUCED
     Route: 065
     Dates: start: 20101213
  5. ROACTEMRA [Suspect]
     Dosage: DOSE INCREASED
     Route: 065
     Dates: start: 20110613
  6. ROACTEMRA [Suspect]
     Dosage: REDUCED DOSE
     Route: 065
     Dates: start: 20120530, end: 20121001
  7. PREDNISOLONE [Concomitant]
     Route: 048

REACTIONS (1)
  - Transaminases increased [Recovering/Resolving]
